FAERS Safety Report 12671497 (Version 1)
Quarter: 2016Q3

REPORT INFORMATION
  Report Type: Spontaneous
  Country: NL (occurrence: NL)
  Receive Date: 20160822
  Receipt Date: 20160822
  Transmission Date: 20161109
  Serious: Yes (Other)
  Sender: FDA-Public Use
  Company Number: NL-TEVA-681099ACC

PATIENT
  Age: 76 Year
  Sex: Female
  Weight: 70 kg

DRUGS (3)
  1. METHOTREXATE (METHOTREXATE SODIUM) [Interacting]
     Active Substance: METHOTREXATE SODIUM
     Indication: RHEUMATOID ARTHRITIS
     Dosage: ONCE PER WEEK TWO PIECES
     Route: 048
     Dates: start: 2009
  2. PANTOPRAZOLE NATRIUM TABLET MSR 20MG [Suspect]
     Active Substance: PANTOPRAZOLE SODIUM
     Indication: ABDOMINAL DISCOMFORT
     Dosage: ONCE DAILY ONE PIECE, EXTRA INFO: PERIODS OF NOT CHRONIC
     Route: 048
     Dates: start: 2011, end: 20160601
  3. FOLIUMZUUR TABLET 5MG [Concomitant]
     Active Substance: FOLIC ACID
     Dosage: 3 TIMES PER WEEK ONE PIECE
     Route: 048
     Dates: start: 2009

REACTIONS (2)
  - Drug interaction [Recovered/Resolved]
  - Rheumatoid arthritis [Recovered/Resolved]

NARRATIVE: CASE EVENT DATE: 20160601
